FAERS Safety Report 6575803-8 (Version None)
Quarter: 2010Q1

REPORT INFORMATION
  Report Type: 
  Country: None (occurrence: None)
  Receive Date: 20100208
  Receipt Date: 20100208
  Transmission Date: 20100710
  Serious: Yes (Hospitalization)
  Sender: FDA-Public Use
  Company Number: None

PATIENT
  Age: 82 Year
  Sex: Female
  Weight: 60.782 kg

DRUGS (1)
  1. ZOCOR [Suspect]

REACTIONS (6)
  - HYPOREFLEXIA [None]
  - INFECTION [None]
  - MUSCULAR WEAKNESS [None]
  - MYOPATHY [None]
  - MYOSITIS [None]
  - WHITE BLOOD CELL COUNT INCREASED [None]
